FAERS Safety Report 19969038 (Version 1)
Quarter: 2021Q4

REPORT INFORMATION
  Report Type: Spontaneous
  Country: US (occurrence: US)
  Receive Date: 20211015
  Receipt Date: 20211015
  Transmission Date: 20220303
  Serious: Yes (Hospitalization)
  Sender: FDA-Public Use
  Company Number: None

PATIENT
  Age: 60 Year
  Sex: Female
  Weight: 100 kg

DRUGS (15)
  1. TAXOTERE [Suspect]
     Active Substance: DOCETAXEL
     Dates: end: 20210909
  2. PERTUZUMAB [Suspect]
     Active Substance: PERTUZUMAB
     Dates: end: 20210909
  3. HERCEPTIN [Suspect]
     Active Substance: TRASTUZUMAB
     Dates: end: 20210909
  4. ARIPIPRAZOLE [Concomitant]
     Active Substance: ARIPIPRAZOLE
  5. ASPIRIN [Concomitant]
     Active Substance: ASPIRIN
  6. BENADRYL [Concomitant]
     Active Substance: DIPHENHYDRAMINE HYDROCHLORIDE
  7. CARVEDILOL [Concomitant]
     Active Substance: CARVEDILOL
  8. COMPAZINE [Concomitant]
     Active Substance: PROCHLORPERAZINE MALEATE
  9. DECADRON [Concomitant]
     Active Substance: DEXAMETHASONE
  10. ESCITALOPRAM [Concomitant]
     Active Substance: ESCITALOPRAM OXALATE
  11. GLIPIZIDE [Concomitant]
     Active Substance: GLIPIZIDE
  12. LISINOPRIL [Concomitant]
     Active Substance: LISINOPRIL
  13. METFORMIN [Concomitant]
     Active Substance: METFORMIN HYDROCHLORIDE
  14. SYNTHROID [Concomitant]
     Active Substance: LEVOTHYROXINE SODIUM
  15. TYLENOL [Concomitant]
     Active Substance: ACETAMINOPHEN

REACTIONS (16)
  - Nausea [None]
  - Vomiting [None]
  - Diarrhoea [None]
  - Hypotension [None]
  - Tachycardia [None]
  - Blood pressure orthostatic [None]
  - Asthenia [None]
  - Acute kidney injury [None]
  - Dysuria [None]
  - Vomiting [None]
  - Hyponatraemia [None]
  - Hypokalaemia [None]
  - Hypophagia [None]
  - Hyperphosphataemia [None]
  - Hypocalcaemia [None]
  - Oliguria [None]

NARRATIVE: CASE EVENT DATE: 20211011
